FAERS Safety Report 7465088-2 (Version None)
Quarter: 2011Q2

REPORT INFORMATION
  Report Type: 
  Country: None (occurrence: None)
  Receive Date: 20110509
  Receipt Date: 20100909
  Transmission Date: 20111010
  Serious: No
  Sender: FDA-Public Use
  Company Number: US-SANOFI-AVENTIS-2010SA055994

PATIENT
  Sex: Female

DRUGS (4)
  1. APIDRA [Suspect]
     Indication: TYPE 2 DIABETES MELLITUS
     Route: 065
     Dates: start: 20100904
  2. NOVOLOG [Suspect]
     Indication: TYPE 2 DIABETES MELLITUS
     Route: 065
  3. LANTUS [Suspect]
     Indication: TYPE 2 DIABETES MELLITUS
     Route: 058
  4. HUMALOG [Suspect]
     Indication: TYPE 2 DIABETES MELLITUS
     Route: 065

REACTIONS (8)
  - PERIARTHRITIS [None]
  - ASTHMA [None]
  - FALL [None]
  - UNEVALUABLE EVENT [None]
  - MALAISE [None]
  - COUGH [None]
  - SINUS DISORDER [None]
  - MUSCULOSKELETAL PAIN [None]
